FAERS Safety Report 4524221-2 (Version None)
Quarter: 2004Q4

REPORT INFORMATION
  Report Type: 
  Country: None (occurrence: None)
  Receive Date: 20041209
  Receipt Date: 20041130
  Transmission Date: 20050328
  Serious: Yes (Other)
  Sender: FDA-Public Use
  Company Number: 2004-11-0883

PATIENT
  Age: 12 Year
  Sex: Male

DRUGS (4)
  1. GENTAMICIN SULFATE [Suspect]
     Indication: STAPHYLOCOCCAL INFECTION
     Dosage: 120 MG INTRAMUSCULAR
     Route: 030
     Dates: start: 20041111, end: 20041127
  2. MIDAZOLAM INJECTABLE SOLUTION [Suspect]
     Dosage: 36 MG
  3. MODACIN [Concomitant]
  4. FOSFLUCONAZOLE (FLUCONAZOLE) [Concomitant]

REACTIONS (1)
  - RHABDOMYOLYSIS [None]
